FAERS Safety Report 24205417 (Version 4)
Quarter: 2024Q4

REPORT INFORMATION
  Report Type: Other
  Country: US (occurrence: US)
  Receive Date: 20240813
  Receipt Date: 20241114
  Transmission Date: 20250115
  Serious: No
  Sender: TRAVERE THERAPEUTICS
  Company Number: US-TRAVERE-2024TVT00717

PATIENT
  Age: 40 Year
  Sex: Female

DRUGS (2)
  1. FILSPARI [Suspect]
     Active Substance: SPARSENTAN
     Indication: Chronic kidney disease
     Route: 048
     Dates: start: 20240710
  2. FILSPARI [Suspect]
     Active Substance: SPARSENTAN
     Indication: Haematuria
     Route: 048

REACTIONS (10)
  - Dizziness [None]
  - Nausea [Recovering/Resolving]
  - Hypotension [None]
  - Fatigue [Recovering/Resolving]
  - Cough [Unknown]
  - Weight increased [Unknown]
  - Peripheral swelling [None]
  - Fluid retention [Unknown]
  - Product use in unapproved indication [Unknown]
  - Myalgia [Unknown]

NARRATIVE: CASE EVENT DATE: 20240710
